FAERS Safety Report 15629593 (Version 1)
Quarter: 2018Q4

REPORT INFORMATION
  Report Type: Spontaneous
  Country: US (occurrence: US)
  Receive Date: 20181117
  Receipt Date: 20181117
  Transmission Date: 20190205
  Serious: No
  Sender: FDA-Public Use
  Company Number: US-MACLEODS PHARMACEUTICALS US LTD-MAC2018016543

PATIENT

DRUGS (1)
  1. CLOBETASOL TOPICAL SOLUTION [Suspect]
     Active Substance: CLOBETASOL
     Indication: PRODUCT USED FOR UNKNOWN INDICATION
     Dosage: UNK UNK, BID
     Route: 061

REACTIONS (3)
  - Burning sensation [Unknown]
  - Eye disorder [Unknown]
  - Swelling face [Unknown]
